FAERS Safety Report 5429669-X (Version None)
Quarter: 2007Q3

REPORT INFORMATION
  Report Type: 
  Country: None (occurrence: None)
  Receive Date: 20070829
  Receipt Date: 20070821
  Transmission Date: 20080115
  Serious: Yes (Hospitalization, Other)
  Sender: FDA-Public Use
  Company Number: US-SHR-US-2007-013063

PATIENT
  Age: 57 Year
  Sex: Female

DRUGS (9)
  1. LEUKINE [Suspect]
     Indication: OVARIAN CANCER RECURRENT
     Dosage: 400 UG, 6 7-DAY CYCLES
     Route: 058
     Dates: start: 20070122, end: 20070620
  2. CARBOPLATIN [Suspect]
     Indication: OVARIAN CANCER RECURRENT
     Dosage: AUC =5, 3 DOSES
     Route: 042
     Dates: start: 20070130, end: 20070622
  3. INTERFERON GAMMA [Suspect]
     Indication: OVARIAN CANCER RECURRENT
     Dosage: 0.1 MG, 12 TOTAL DOSES
     Route: 058
     Dates: start: 20070126, end: 20070620
  4. BENADRYL ^PFIZER WARNER-LAMBERT^ [Concomitant]
  5. CIMETIDINE HCL [Concomitant]
     Dosage: 300 MG, 1X/DAY
     Route: 048
  6. COMPAZINE [Concomitant]
  7. DEXAMETHASONE 0.5MG TAB [Concomitant]
  8. VITAMIN CAP [Concomitant]
  9. TYLENOL (CAPLET) [Concomitant]

REACTIONS (5)
  - BLOOD CHOLESTEROL INCREASED [None]
  - CHEST PAIN [None]
  - CORONARY ARTERY OCCLUSION [None]
  - MYOCARDIAL INFARCTION [None]
  - VENOUS OCCLUSION [None]
